FAERS Safety Report 23212812 (Version 1)
Quarter: 2023Q4

REPORT INFORMATION
  Report Type: Spontaneous
  Country: DK (occurrence: DK)
  Receive Date: 20231121
  Receipt Date: 20231121
  Transmission Date: 20240109
  Serious: Yes (Life-Threatening, Hospitalization)
  Sender: FDA-Public Use
  Company Number: None

PATIENT
  Age: 79 Year
  Sex: Female
  Weight: 73 kg

DRUGS (11)
  1. GABAPENTIN [Suspect]
     Active Substance: GABAPENTIN
     Indication: Neuralgia
     Dosage: UNIT DOSE:300MG,FREQUENCY TIME:2 DAYS
     Dates: start: 20230913, end: 202309
  2. ALFACALCIDOL ^ORIFARM^ [Concomitant]
     Indication: Calcium metabolism disorder
     Dates: start: 20191211
  3. ASPIRIN [Concomitant]
     Active Substance: ASPIRIN
     Indication: Anticoagulant therapy
     Dates: start: 20150526
  4. LEVOTHYROXINE [Concomitant]
     Active Substance: LEVOTHYROXINE
     Indication: Hypothyroidism
     Dates: start: 20141124
  5. LOSARTAN POTASSIUM [Concomitant]
     Active Substance: LOSARTAN POTASSIUM
     Indication: Hypertension
     Dates: start: 20160317
  6. VAGIFEM [Concomitant]
     Active Substance: ESTRADIOL
     Indication: Hormone therapy
     Dates: start: 20160317
  7. PANTOPRAZOL ^KRKA^ [Concomitant]
     Indication: Gastrooesophageal reflux disease
     Dates: start: 20150902
  8. SIMVASTATIN [Concomitant]
     Active Substance: SIMVASTATIN
     Indication: Thrombosis prophylaxis
     Dates: start: 20150526
  9. LINAGLIPTIN [Concomitant]
     Active Substance: LINAGLIPTIN
     Indication: Type 2 diabetes mellitus
     Dates: start: 20221012
  10. FURIX [Concomitant]
     Indication: Renal failure
     Dates: start: 20210618
  11. SERTRALINE HYDROCHLORIDE [Concomitant]
     Active Substance: SERTRALINE HYDROCHLORIDE
     Indication: Depression
     Dates: start: 20160922

REACTIONS (2)
  - Muscular weakness [Recovering/Resolving]
  - Aphasia [Recovering/Resolving]

NARRATIVE: CASE EVENT DATE: 20230913
